FAERS Safety Report 11204700 (Version 2)
Quarter: 2015Q3

REPORT INFORMATION
  Report Type: Spontaneous
  Country: BR (occurrence: BR)
  Receive Date: 20150622
  Receipt Date: 20150701
  Transmission Date: 20151125
  Serious: Yes (Hospitalization, Other)
  Sender: FDA-Public Use
  Company Number: BR-AMGEN-BRASP2015050137

PATIENT
  Age: 45 Year
  Sex: Female
  Weight: 70 kg

DRUGS (3)
  1. PREDSIM [Concomitant]
     Active Substance: PREDNISOLONE
     Indication: RHEUMATOID ARTHRITIS
     Dosage: ONE TABLET (20 MG), DAILY
     Dates: start: 200001
  2. ENBREL [Suspect]
     Active Substance: ETANERCEPT
     Indication: RHEUMATOID ARTHRITIS
     Dosage: 20 MG, ONCE WEEKLY
     Route: 058
     Dates: start: 201301, end: 201412
  3. COLCHIS [Concomitant]
     Indication: LIVER DISORDER
     Dosage: UNSPECIFIED DOSE, 1X/DAY
     Dates: start: 201306

REACTIONS (10)
  - Injection site pain [Not Recovered/Not Resolved]
  - Injection site hypersensitivity [Recovered/Resolved]
  - Depression [Unknown]
  - Injection site erythema [Recovered/Resolved]
  - Osteoarthritis [Unknown]
  - Osteoporosis [Unknown]
  - Gait disturbance [Not Recovered/Not Resolved]
  - Drug ineffective [Unknown]
  - Injection site swelling [Not Recovered/Not Resolved]
  - Injection site warmth [Not Recovered/Not Resolved]

NARRATIVE: CASE EVENT DATE: 2014
